FAERS Safety Report 14005209 (Version 1)
Quarter: 2017Q3

REPORT INFORMATION
  Report Type: Spontaneous
  Country: FR (occurrence: FR)
  Receive Date: 20170922
  Receipt Date: 20170922
  Transmission Date: 20171128
  Serious: Yes (Hospitalization)
  Sender: FDA-Public Use
  Company Number: FR-SA-2017SA171050

PATIENT
  Age: 84 Year
  Sex: Female

DRUGS (17)
  1. ZYLORIC [Concomitant]
     Active Substance: ALLOPURINOL
     Route: 048
     Dates: end: 201704
  2. EZETROL [Concomitant]
     Active Substance: EZETIMIBE
     Route: 048
     Dates: end: 201704
  3. LEVOTHYROX [Concomitant]
     Active Substance: LEVOTHYROXINE
     Route: 048
  4. MINISINTROM [Concomitant]
     Active Substance: ACENOCOUMAROL
     Route: 048
  5. AMIKACIN [Concomitant]
     Active Substance: AMIKACIN
     Route: 042
     Dates: start: 20170312, end: 20170315
  6. TEMESTA [Concomitant]
     Active Substance: LORAZEPAM
     Route: 048
  7. CEFOTAXIME [Concomitant]
     Active Substance: CEFOTAXIME SODIUM
     Route: 042
     Dates: start: 20170312, end: 20170315
  8. RIFAMPICINE [Suspect]
     Active Substance: RIFAMPIN
     Route: 048
     Dates: start: 20170323, end: 20170329
  9. CEFAZOLINE [Concomitant]
     Active Substance: CEFAZOLIN SODIUM
     Route: 042
     Dates: start: 20170317, end: 20170323
  10. FLAGYL [Concomitant]
     Active Substance: METRONIDAZOLE\METRONIDAZOLE HYDROCHLORIDE
     Route: 048
     Dates: start: 20170312, end: 20170315
  11. AUGMENTIN [Concomitant]
     Active Substance: AMOXICILLIN\CLAVULANATE POTASSIUM
     Route: 048
     Dates: start: 20170315, end: 20170317
  12. GENTAMICIN. [Concomitant]
     Active Substance: GENTAMICIN
     Route: 042
     Dates: start: 20170317, end: 20170323
  13. OFLOCET [Suspect]
     Active Substance: OFLOXACIN
     Indication: SEPSIS
     Route: 048
     Dates: start: 20170323, end: 20170329
  14. DETENSIEL [Concomitant]
     Active Substance: BISOPROLOL FUMARATE
     Route: 048
  15. LIPANTHYL [Concomitant]
     Active Substance: FENOFIBRATE
     Route: 048
     Dates: end: 201704
  16. FUROSEMIDE. [Concomitant]
     Active Substance: FUROSEMIDE
     Route: 048
  17. CORDARONE [Concomitant]
     Active Substance: AMIODARONE HYDROCHLORIDE
     Dosage: STRENGTH: 200MG
     Route: 048

REACTIONS (1)
  - Cholestasis [Recovered/Resolved]

NARRATIVE: CASE EVENT DATE: 20170327
